FAERS Safety Report 6927965-8 (Version None)
Quarter: 2010Q3

REPORT INFORMATION
  Report Type: 
  Country: None (occurrence: None)
  Receive Date: 20100817
  Receipt Date: 20100804
  Transmission Date: 20110219
  Serious: Yes (Hospitalization, Other)
  Sender: FDA-Public Use
  Company Number: US-ELI_LILLY_AND_COMPANY-US201007003413

PATIENT
  Sex: Female
  Weight: 99.32 kg

DRUGS (14)
  1. BYETTA [Suspect]
     Indication: TYPE 2 DIABETES MELLITUS
     Dosage: 5 UG, 2/D
     Route: 058
     Dates: start: 20060331, end: 20060525
  2. BYETTA [Suspect]
     Dosage: 10 UG, 2/D
     Route: 058
     Dates: start: 20060525, end: 20100613
  3. ACCUPRIL [Concomitant]
     Dosage: 40 MG, 2/D
  4. METFORMIN [Concomitant]
     Indication: TYPE 2 DIABETES MELLITUS
     Dosage: 850 MG, 3/D
  5. LEVEMIR [Concomitant]
     Indication: TYPE 2 DIABETES MELLITUS
     Dosage: 20 D/F, EACH MORNING
  6. ZETIA [Concomitant]
     Indication: DYSLIPIDAEMIA
     Dosage: 10 MG, UNK
  7. LIPITOR [Concomitant]
     Indication: DYSLIPIDAEMIA
     Dosage: 40 MG, UNK
  8. LEVOTHYROXINE SODIUM [Concomitant]
     Indication: HYPOTHYROIDISM
     Dosage: 0.137 UG, DAILY (1/D)
  9. ATENOLOL [Concomitant]
     Dosage: 50 MG, 2/D
  10. LASIX [Concomitant]
     Indication: CORONARY ARTERY DISEASE
     Dosage: 20 MG, UNK
  11. ASPIRIN [Concomitant]
     Indication: CORONARY ARTERY DISEASE
     Dosage: 81 MG, UNK
  12. AMLODIPINE [Concomitant]
     Dosage: 10 MG, DAILY (1/D)
  13. DIURETICS [Concomitant]
  14. STATIN /00084401/ [Concomitant]

REACTIONS (9)
  - BLOOD CHOLESTEROL INCREASED [None]
  - DECREASED APPETITE [None]
  - MITRAL VALVE DISEASE [None]
  - MITRAL VALVE INCOMPETENCE [None]
  - OFF LABEL USE [None]
  - PANCREATITIS [None]
  - RENAL FAILURE [None]
  - THYROID CANCER [None]
  - WEIGHT DECREASED [None]
